FAERS Safety Report 5664237-6 (Version None)
Quarter: 2008Q1

REPORT INFORMATION
  Report Type: 
  Country: None (occurrence: None)
  Receive Date: 20080314
  Receipt Date: 20080306
  Transmission Date: 20080703
  Serious: Yes (Hospitalization)
  Sender: FDA-Public Use
  Company Number: JP-GILEAD-2008-0015587

PATIENT
  Sex: Male

DRUGS (8)
  1. TRUVADA [Suspect]
     Route: 048
     Dates: start: 20050907
  2. EPIVIR [Suspect]
     Indication: HIV INFECTION
     Route: 048
     Dates: start: 20000517, end: 20040222
  3. RETROVIR [Suspect]
     Indication: HIV INFECTION
     Route: 048
     Dates: start: 20000517, end: 20010809
  4. ZERIT [Suspect]
     Indication: HIV INFECTION
     Route: 048
     Dates: start: 20010810, end: 20040222
  5. COMBIVIR [Suspect]
     Indication: HIV INFECTION
     Route: 048
     Dates: start: 20040223, end: 20050906
  6. REYATAZ [Suspect]
     Route: 048
     Dates: start: 20040223, end: 20050906
  7. EFAVIRENZ [Suspect]
     Indication: HIV INFECTION
     Route: 048
     Dates: start: 20050907
  8. NORVACT M [Concomitant]
     Dates: start: 20060401

REACTIONS (1)
  - OESOPHAGEAL VARICES HAEMORRHAGE [None]
